FAERS Safety Report 9387132 (Version 1)
Quarter: 2013Q3

REPORT INFORMATION
  Report Type: Report from Study
  Country: CA (occurrence: CA)
  Receive Date: 20130708
  Receipt Date: 20130708
  Transmission Date: 20140515
  Serious: Yes (Hospitalization)
  Sender: FDA-Public Use
  Company Number: CA-JNJFOC-20130703976

PATIENT
  Sex: Female
  Weight: 82.56 kg

DRUGS (2)
  1. REMICADE [Suspect]
     Indication: CROHN^S DISEASE
     Route: 042
     Dates: end: 2013
  2. REMICADE [Suspect]
     Indication: CROHN^S DISEASE
     Route: 042

REACTIONS (5)
  - Intestinal obstruction [Unknown]
  - Drug ineffective [Unknown]
  - Swelling [Unknown]
  - Arthralgia [Unknown]
  - Abasia [Unknown]
